FAERS Safety Report 10781552 (Version 1)
Quarter: 2015Q1

REPORT INFORMATION
  Report Type: Spontaneous
  Country: US (occurrence: None)
  Receive Date: 20150209
  Receipt Date: 20150209
  Transmission Date: 20150721
  Serious: Yes (Other)
  Sender: FDA-Public Use
  Company Number: None

PATIENT
  Age: 31 Year
  Sex: Male
  Weight: 77.11 kg

DRUGS (1)
  1. ATOMOXETINE [Suspect]
     Active Substance: ATOMOXETINE
     Indication: ATTENTION DEFICIT/HYPERACTIVITY DISORDER
     Dosage: 2 CAPS
     Route: 048
     Dates: start: 20150115, end: 20150207

REACTIONS (6)
  - Thinking abnormal [None]
  - Mobility decreased [None]
  - Asthenia [None]
  - Dizziness [None]
  - Cardiac flutter [None]
  - Tremor [None]

NARRATIVE: CASE EVENT DATE: 20150207
